FAERS Safety Report 6194166-3 (Version None)
Quarter: 2009Q2

REPORT INFORMATION
  Report Type: 
  Country: None (occurrence: None)
  Receive Date: 20090518
  Receipt Date: 20090508
  Transmission Date: 20091009
  Serious: Yes (Hospitalization)
  Sender: FDA-Public Use
  Company Number: US-ABBOTT-09P-163-0572188-00

PATIENT
  Age: 38 Year
  Sex: Female

DRUGS (8)
  1. KALETRA [Suspect]
     Indication: HIV INFECTION
     Dosage: 800MG/200MG DAILY
     Route: 048
     Dates: start: 20080909, end: 20090311
  2. KALETRA [Suspect]
     Dosage: 1200MG/300MG
     Dates: start: 20090311
  3. COMBIVIR [Concomitant]
     Indication: DRUG USE FOR UNKNOWN INDICATION
     Dosage: 300MG/600MG DAILY
     Route: 048
     Dates: start: 20080909
  4. FERROUS SULFATE TAB [Concomitant]
     Indication: DRUG USE FOR UNKNOWN INDICATION
     Route: 048
  5. MOTRIN [Concomitant]
     Indication: PAIN
     Route: 048
  6. SURFAK [Concomitant]
     Indication: DRUG USE FOR UNKNOWN INDICATION
     Route: 048
  7. PNV [Concomitant]
     Indication: DRUG USE FOR UNKNOWN INDICATION
  8. VICODIN [Concomitant]
     Indication: PAIN
     Dosage: 1-2 TABLETS EVERY 4-6 HOURS AS NEEDED FOR PAIN
     Route: 048

REACTIONS (1)
  - CHORIOAMNIONITIS [None]
